FAERS Safety Report 8713194 (Version 2)
Quarter: 2012Q4

REPORT INFORMATION
  Report Type: 
  Country: US (occurrence: US)
  Receive Date: 20120808
  Receipt Date: 20120914
  Transmission Date: 20130627
  Serious: No
  Sender: FDA-Public Use
  Company Number: US-PFIZER INC-2012190654

PATIENT
  Age: 61 Year
  Sex: Female

DRUGS (20)
  1. STOOL SOFTENER [Concomitant]
     Dosage: 100 mg, 1x/day
  2. LYRICA [Suspect]
     Indication: ANALGESIC THERAPY
     Dosage: 75 mg, 2x/day
     Route: 048
     Dates: start: 20120724
  3. LYRICA [Suspect]
     Indication: FIBROMYALGIA
  4. LYRICA [Suspect]
     Indication: NEURALGIA
  5. HYDROMORPHONE [Concomitant]
     Dosage: 21mg/ml
  6. BACLOFEN [Concomitant]
     Dosage: 210 ug/ml
  7. BUPIVACAINE [Concomitant]
     Dosage: 14.463 mg, 1x/day
  8. DILAUDID [Concomitant]
     Dosage: 4 mg 1-2 every 4-6 hours, as needed
     Route: 048
  9. LASIX [Concomitant]
     Dosage: 20 mg, 2x/day
  10. DIAZEPAM [Concomitant]
     Dosage: 10 mg, 2x/day
  11. CYMBALTA [Concomitant]
     Dosage: 60 mg, daily
  12. ATENOLOL [Concomitant]
     Dosage: 100 mg, daily
  13. AMLODIPINE [Concomitant]
     Dosage: 5 mg, daily
  14. LISINOPRIL [Concomitant]
     Dosage: 10 mg, daily
  15. AZATHIOPRINE [Concomitant]
     Dosage: 50 mg, 3x/day
  16. LEVOTHYROXINE [Concomitant]
     Dosage: 50 mg, daily
  17. OMEPRAZOLE [Concomitant]
     Dosage: 40 mg
  18. AMBIEN CR [Concomitant]
     Dosage: 12.5 mg every bed time (QHS)
  19. PROTONIX [Concomitant]
     Dosage: 40 mg
  20. VITAMIN D3 [Concomitant]

REACTIONS (3)
  - Pruritus generalised [Recovered/Resolved]
  - Swollen tongue [Recovered/Resolved]
  - Rash [Recovered/Resolved]
